FAERS Safety Report 17078929 (Version 1)
Quarter: 2019Q4

REPORT INFORMATION
  Report Type: Spontaneous
  Country: US (occurrence: US)
  Receive Date: 20191127
  Receipt Date: 20191127
  Transmission Date: 20200122
  Serious: No
  Sender: FDA-Public Use
  Company Number: US-AUROBINDO-AUR-APL-2019-037074

PATIENT

DRUGS (1)
  1. LOSARTAN 100MG [Suspect]
     Active Substance: LOSARTAN
     Indication: PRODUCT USED FOR UNKNOWN INDICATION
     Dosage: UNK (ABOUT A MONTH)
     Route: 065

REACTIONS (5)
  - Dyspnoea [Unknown]
  - Myalgia [Unknown]
  - Throat tightness [Unknown]
  - Product substitution issue [Unknown]
  - Skin reaction [Unknown]
